FAERS Safety Report 13412390 (Version 2)
Quarter: 2017Q4

REPORT INFORMATION
  Report Type: Spontaneous
  Country: US (occurrence: US)
  Receive Date: 20170406
  Receipt Date: 20171123
  Transmission Date: 20180320
  Serious: No
  Sender: FDA-Public Use
  Company Number: US-JNJFOC-20170310462

PATIENT
  Sex: Male

DRUGS (10)
  1. RISPERIDONE. [Suspect]
     Active Substance: RISPERIDONE
     Indication: POST-TRAUMATIC STRESS DISORDER
     Dosage: VARYING DOSES OF 0.25 MG TO 2 MG
     Route: 048
     Dates: start: 20081002, end: 20120608
  2. RISPERIDONE. [Suspect]
     Active Substance: RISPERIDONE
     Indication: ATTENTION DEFICIT/HYPERACTIVITY DISORDER
     Dosage: VARYING DOSES OF 0.25 MG TO 2 MG
     Route: 048
     Dates: start: 20081002, end: 20120608
  3. RISPERDAL [Suspect]
     Active Substance: RISPERIDONE
     Indication: PSYCHOTIC DISORDER
     Dosage: VARYING DOSES OF 0.25 MG TO 2 MG
     Route: 048
     Dates: start: 20040401, end: 20071107
  4. RISPERDAL [Suspect]
     Active Substance: RISPERIDONE
     Indication: AFFECTIVE DISORDER
     Dosage: VARYING DOSES OF 0.25 MG TO 2 MG
     Route: 048
     Dates: start: 20040401, end: 20071107
  5. RISPERDAL [Suspect]
     Active Substance: RISPERIDONE
     Indication: POST-TRAUMATIC STRESS DISORDER
     Dosage: VARYING DOSES OF 0.25 MG TO 2 MG
     Route: 048
     Dates: start: 20040401, end: 20071107
  6. RISPERIDONE. [Suspect]
     Active Substance: RISPERIDONE
     Indication: OPPOSITIONAL DEFIANT DISORDER
     Dosage: VARYING DOSES OF 0.25 MG TO 2 MG
     Route: 048
     Dates: start: 20081002, end: 20120608
  7. RISPERDAL [Suspect]
     Active Substance: RISPERIDONE
     Indication: ATTENTION DEFICIT/HYPERACTIVITY DISORDER
     Dosage: VARYING DOSES OF 0.25 MG TO 2 MG
     Route: 048
     Dates: start: 20040401, end: 20071107
  8. RISPERIDONE. [Suspect]
     Active Substance: RISPERIDONE
     Indication: PSYCHOTIC DISORDER
     Dosage: VARYING DOSES OF 0.25 MG TO 2 MG
     Route: 048
     Dates: start: 20081002, end: 20120608
  9. RISPERDAL [Suspect]
     Active Substance: RISPERIDONE
     Indication: OPPOSITIONAL DEFIANT DISORDER
     Dosage: VARYING DOSES OF 0.25 MG TO 2 MG
     Route: 048
     Dates: start: 20040401, end: 20071107
  10. RISPERIDONE. [Suspect]
     Active Substance: RISPERIDONE
     Indication: AFFECTIVE DISORDER
     Dosage: VARYING DOSES OF 0.25 MG TO 2 MG
     Route: 048
     Dates: start: 20081002, end: 20120608

REACTIONS (2)
  - Gynaecomastia [Unknown]
  - Emotional disorder [Unknown]
